FAERS Safety Report 10172159 (Version 1)
Quarter: 2014Q2

REPORT INFORMATION
  Report Type: Spontaneous
  Country: SE (occurrence: SE)
  Receive Date: 20140515
  Receipt Date: 20140515
  Transmission Date: 20141212
  Serious: Yes (Hospitalization, Disabling)
  Sender: FDA-Public Use
  Company Number: SE-009507513-1405SWE005501

PATIENT
  Age: 73 Year
  Sex: Female

DRUGS (2)
  1. FOSAMAX VECKOTABLETT 70 MG TABLETTER [Suspect]
     Indication: OSTEOPOROSIS
     Dosage: 70 MG, QW
     Route: 048
     Dates: end: 20140415
  2. PREDNISOLONE [Concomitant]

REACTIONS (1)
  - Femur fracture [Not Recovered/Not Resolved]
